FAERS Safety Report 9563343 (Version 1)
Quarter: 2013Q3

REPORT INFORMATION
  Report Type: Spontaneous
  Country: TR (occurrence: TR)
  Receive Date: 20130927
  Receipt Date: 20130927
  Transmission Date: 20140515
  Serious: Yes (Hospitalization, Other)
  Sender: FDA-Public Use
  Company Number: TR-ASTRAZENECA-2013SE70397

PATIENT
  Age: 47 Year
  Sex: Female

DRUGS (5)
  1. PROPOFOL [Suspect]
     Indication: ANAESTHESIA
     Route: 042
  2. QUETIAPINE [Interacting]
     Indication: BIPOLAR I DISORDER
     Route: 048
  3. QUETIAPINE [Interacting]
     Indication: BIPOLAR I DISORDER
  4. VALPROATE [Interacting]
     Indication: BIPOLAR I DISORDER
     Route: 048
  5. FLUPENTHIXOLE [Concomitant]
     Indication: BIPOLAR I DISORDER

REACTIONS (3)
  - Overdose [Unknown]
  - Drug interaction [Recovering/Resolving]
  - Hyperammonaemic encephalopathy [Recovering/Resolving]
